FAERS Safety Report 4356030-1 (Version None)
Quarter: 2004Q2

REPORT INFORMATION
  Report Type: 
  Country: None (occurrence: None)
  Receive Date: 20040511
  Receipt Date: 20040430
  Transmission Date: 20050107
  Serious: Yes (Other)
  Sender: FDA-Public Use
  Company Number: CA-ROCHE-366388

PATIENT
  Age: 21 Year
  Sex: Female

DRUGS (5)
  1. ACCUTANE [Suspect]
     Indication: DRUG USE FOR UNKNOWN INDICATION
     Route: 065
  2. ALESSE [Concomitant]
  3. PANTOLOC [Concomitant]
     Route: 048
  4. PAXIL [Concomitant]
     Route: 048
  5. ORTHO TRI-CYCLEN [Concomitant]

REACTIONS (2)
  - ENDOMETRIAL HYPOPLASIA [None]
  - VULVOVAGINAL DISCOMFORT [None]
